FAERS Safety Report 5900373-4 (Version None)
Quarter: 2008Q3

REPORT INFORMATION
  Report Type: 
  Country: None (occurrence: None)
  Receive Date: 20080926
  Receipt Date: 20080922
  Transmission Date: 20090109
  Serious: Yes (Hospitalization)
  Sender: FDA-Public Use
  Company Number: NO-WYE-H04314408

PATIENT
  Sex: Male

DRUGS (6)
  1. CORDARONE [Suspect]
     Indication: ATRIAL FIBRILLATION
     Route: 048
     Dates: start: 20080220, end: 20080427
  2. ATACAND [Concomitant]
     Dosage: DOSE AND FREQUENCY NOT SPECIFIED
     Route: 048
     Dates: end: 20080414
  3. ALBYL-E [Concomitant]
     Route: 048
  4. NEXIUM [Concomitant]
     Route: 048
  5. SIMVASTATIN [Interacting]
     Indication: AORTIC ARTERIOSCLEROSIS
     Route: 048
     Dates: start: 20080201, end: 20080426
  6. ABBOTICIN [Interacting]
     Indication: PNEUMONIA
     Route: 048
     Dates: start: 20080404, end: 20080415

REACTIONS (2)
  - DRUG INTERACTION [None]
  - RHABDOMYOLYSIS [None]
